FAERS Safety Report 12864528 (Version 1)
Quarter: 2016Q4

REPORT INFORMATION
  Report Type: Spontaneous
  Country: US (occurrence: US)
  Receive Date: 20161018
  Receipt Date: 20161018
  Transmission Date: 20170207
  Serious: Yes (Hospitalization)
  Sender: FDA-Public Use
  Company Number: None

PATIENT
  Age: 66 Year
  Sex: Female

DRUGS (8)
  1. ATORVASTATIN [Concomitant]
     Active Substance: ATORVASTATIN
  2. LANSOPRAZOLE. [Concomitant]
     Active Substance: LANSOPRAZOLE
  3. LOSARTAN. [Concomitant]
     Active Substance: LOSARTAN
  4. MULTIVITAMIN [Concomitant]
     Active Substance: VITAMINS
  5. CALCITRIOL. [Concomitant]
     Active Substance: CALCITRIOL
  6. CHOLECALCIFEROL [Concomitant]
     Active Substance: CHOLECALCIFEROL
  7. LEVOTHYROXINE. [Concomitant]
     Active Substance: LEVOTHYROXINE
  8. WARFARIN [Suspect]
     Active Substance: WARFARIN
     Indication: ATRIAL FIBRILLATION
     Route: 048
     Dates: end: 20160822

REACTIONS (6)
  - Blood creatinine increased [None]
  - Haemoglobin decreased [None]
  - Pyrexia [None]
  - Malaise [None]
  - Asthenia [None]
  - Rectal haemorrhage [None]

NARRATIVE: CASE EVENT DATE: 20160822
